FAERS Safety Report 9993457 (Version 2)
Quarter: 2014Q1

REPORT INFORMATION
  Report Type: Report from Study
  Country: ES (occurrence: ES)
  Receive Date: 20140310
  Receipt Date: 20140319
  Transmission Date: 20141002
  Serious: Yes (Other)
  Sender: FDA-Public Use
  Company Number: ES-TEVA-467654USA

PATIENT
  Age: 58 Year
  Sex: Female
  Weight: 74 kg

DRUGS (11)
  1. BENDAMUSTINE [Suspect]
     Indication: PLASMA CELL MYELOMA
     Route: 042
     Dates: start: 20120117, end: 20120514
  2. VELCADE [Suspect]
     Indication: PLASMA CELL MYELOMA
     Route: 042
     Dates: start: 20120528
  3. VELCADE [Suspect]
     Indication: PLASMA CELL MYELOMA
     Dosage: CYCLIC
     Route: 042
     Dates: start: 20120117
  4. PREDNISONE [Suspect]
     Indication: PLASMA CELL MYELOMA
     Dosage: REGIMEN 1
     Route: 048
     Dates: start: 20120510
  5. PREDNISONE [Suspect]
     Indication: PLASMA CELL MYELOMA
     Dosage: REGIMEN 2 CYCLIC
     Route: 048
     Dates: start: 20120117
  6. PREDNISOLONE [Suspect]
  7. GRANULOCYTE COLONY-STIMULATING FACTOR NOS [Suspect]
  8. OMEPRAZOLE [Concomitant]
  9. TRAMADOL [Concomitant]
  10. LORAZEPAM [Concomitant]
  11. BUPRENORPHINE [Concomitant]

REACTIONS (2)
  - Blood stem cell harvest failure [Recovered/Resolved]
  - Pyrexia [Recovered/Resolved]
